FAERS Safety Report 19801757 (Version 1)
Quarter: 2021Q3

REPORT INFORMATION
  Report Type: Other
  Country: CA (occurrence: CA)
  Receive Date: 20210907
  Receipt Date: 20210907
  Transmission Date: 20211014
  Serious: Yes (Other)
  Sender: FDA-Public Use
  Company Number: CA-CELLTRION INC.-2021CA011854

PATIENT

DRUGS (14)
  1. RITUXIMAB. [Suspect]
     Active Substance: RITUXIMAB
     Dosage: UNK
     Route: 065
  2. AZATHIOPRINE. [Concomitant]
     Active Substance: AZATHIOPRINE
  3. RITUXIMAB. [Suspect]
     Active Substance: RITUXIMAB
     Indication: MEDIASTINAL FIBROSIS
     Dosage: UNK
     Route: 065
  4. RITUXIMAB. [Suspect]
     Active Substance: RITUXIMAB
     Dosage: UNK
     Route: 065
  5. TYLENOL [Concomitant]
     Active Substance: ACETAMINOPHEN
     Indication: PREMEDICATION
     Dosage: 650 MG
     Route: 048
  6. RITUXIMAB. [Suspect]
     Active Substance: RITUXIMAB
     Indication: VENOUS THROMBOSIS
     Dosage: UNK
     Route: 065
  7. BENADRYL [Concomitant]
     Active Substance: DIPHENHYDRAMINE HYDROCHLORIDE
     Indication: PREMEDICATION
     Dosage: 50 MG
     Route: 048
  8. METHYLPREDNISOLONE SODIUM SUCCINATE. [Concomitant]
     Active Substance: METHYLPREDNISOLONE SODIUM SUCCINATE
     Indication: PREMEDICATION
     Dosage: 100 MG
     Route: 042
  9. RITUXIMAB. [Suspect]
     Active Substance: RITUXIMAB
     Indication: LYMPHADENOPATHY
     Dosage: 1000 MG
     Route: 042
  10. RITUXIMAB. [Suspect]
     Active Substance: RITUXIMAB
     Indication: SUPERIOR VENA CAVA SYNDROME
     Dosage: UNK
     Route: 065
  11. RITUXIMAB. [Suspect]
     Active Substance: RITUXIMAB
     Dosage: 1000 MG
     Route: 042
  12. PERINDOPRIL [Concomitant]
     Active Substance: PERINDOPRIL
  13. RITUXIMAB. [Suspect]
     Active Substance: RITUXIMAB
     Dosage: UNK
     Route: 065
  14. CLARITIN [Concomitant]
     Active Substance: LORATADINE

REACTIONS (4)
  - Testicular cyst [Not Recovered/Not Resolved]
  - Infection [Not Recovered/Not Resolved]
  - Off label use [Unknown]
  - Testicular abscess [Not Recovered/Not Resolved]
